FAERS Safety Report 13965933 (Version 1)
Quarter: 2017Q3

REPORT INFORMATION
  Report Type: Report from Study
  Country: US (occurrence: US)
  Receive Date: 20170913
  Receipt Date: 20170913
  Transmission Date: 20171128
  Serious: Yes (Hospitalization, Other)
  Sender: FDA-Public Use
  Company Number: US-PFIZER INC-2017132612

PATIENT
  Age: 56 Year
  Sex: Female

DRUGS (1)
  1. IBRANCE [Suspect]
     Active Substance: PALBOCICLIB
     Indication: BREAST CANCER
     Dosage: 125 MG, CYCLIC (DAILY, 3 WEEKS ON/1 WEEK OFF)
     Route: 048
     Dates: start: 20170321

REACTIONS (13)
  - Abdominal distension [Unknown]
  - Condition aggravated [Not Recovered/Not Resolved]
  - Rash [Unknown]
  - Abdominal pain [Not Recovered/Not Resolved]
  - Neoplasm progression [Unknown]
  - Leukopenia [Unknown]
  - Genital herpes [Unknown]
  - Nasal dryness [Recovered/Resolved]
  - Dysuria [Unknown]
  - Gastritis [Unknown]
  - Micturition urgency [Unknown]
  - Urinary incontinence [Unknown]
  - Rhinorrhoea [Unknown]

NARRATIVE: CASE EVENT DATE: 2017
